FAERS Safety Report 7482083-8 (Version None)
Quarter: 2011Q2

REPORT INFORMATION
  Report Type: 
  Country: None (occurrence: None)
  Receive Date: 20110516
  Receipt Date: 20110511
  Transmission Date: 20111010
  Serious: Yes (Death, Hospitalization)
  Sender: FDA-Public Use
  Company Number: PHHY2011JP40042

PATIENT
  Sex: Female

DRUGS (5)
  1. BEVACIZUMAB [Suspect]
     Indication: COLON CANCER
  2. FLUOROURACIL [Suspect]
     Indication: COLON CANCER
  3. IRINOTECAN HYDROCHLORIDE [Suspect]
     Indication: COLON CANCER
  4. OXALIPLATIN [Suspect]
     Indication: COLON CANCER
  5. LEUCOVORIN CALCIUM [Suspect]
     Indication: COLON CANCER

REACTIONS (8)
  - LUNG DISORDER [None]
  - RESPIRATORY FAILURE [None]
  - PULMONARY FIBROSIS [None]
  - PYREXIA [None]
  - NEOPLASM PROGRESSION [None]
  - SPUTUM DECREASED [None]
  - COUGH [None]
  - DECREASED APPETITE [None]
